FAERS Safety Report 5308274-X (Version None)
Quarter: 2007Q2

REPORT INFORMATION
  Report Type: 
  Country: None (occurrence: None)
  Receive Date: 20070426
  Receipt Date: 20070418
  Transmission Date: 20071010
  Serious: Yes (Hospitalization, Other)
  Sender: FDA-Public Use
  Company Number: DE-BAYER-200710484BVD

PATIENT
  Age: 79 Year
  Sex: Female
  Weight: 68 kg

DRUGS (20)
  1. AVELOX [Suspect]
     Route: 048
     Dates: start: 20061001, end: 20061001
  2. AVELOX [Suspect]
     Indication: TUBERCULOSIS
     Route: 048
     Dates: start: 20061212, end: 20061212
  3. AVELOX [Suspect]
     Route: 042
     Dates: start: 20061228, end: 20061228
  4. AVELOX [Suspect]
     Route: 042
     Dates: start: 20061212, end: 20061217
  5. NOVODIGAL [Concomitant]
     Route: 048
     Dates: start: 20040101, end: 20061210
  6. NOVODIGAL [Concomitant]
     Route: 048
     Dates: start: 20061212, end: 20061231
  7. STREPTOMYCIN [Concomitant]
     Route: 042
     Dates: start: 20061212, end: 20061212
  8. STREPTOMYCIN [Concomitant]
     Route: 042
     Dates: start: 20061211, end: 20061211
  9. CLEXANE [Concomitant]
     Route: 058
     Dates: start: 20061212, end: 20061212
  10. CLEXANE [Concomitant]
     Route: 058
     Dates: start: 20061211, end: 20061211
  11. HEPARIN [Concomitant]
     Route: 058
     Dates: start: 20061213, end: 20061213
  12. HEPARIN [Concomitant]
     Route: 058
     Dates: start: 20061214, end: 20061214
  13. ARIXTRA [Concomitant]
     Route: 058
     Dates: start: 20061216, end: 20061216
  14. ISOPTIN [Concomitant]
     Route: 048
     Dates: start: 20061212, end: 20061231
  15. ISOPTIN [Concomitant]
     Route: 048
     Dates: start: 20040101, end: 20061210
  16. ISOPTIN [Concomitant]
     Route: 048
     Dates: start: 20061211, end: 20061211
  17. LASIX [Concomitant]
     Route: 048
     Dates: start: 20061211, end: 20061217
  18. LASIX [Concomitant]
     Route: 048
     Dates: start: 20040101, end: 20061210
  19. ETHAMBUTOL HYDROCHLORIDE [Concomitant]
     Route: 042
     Dates: start: 20061212
  20. ETHAMBUTOL HYDROCHLORIDE [Concomitant]
     Route: 048
     Dates: start: 20061212, end: 20061212

REACTIONS (3)
  - CLOSTRIDIUM DIFFICILE COLITIS [None]
  - IDIOPATHIC THROMBOCYTOPENIC PURPURA [None]
  - VOMITING [None]
